FAERS Safety Report 23622806 (Version 1)
Quarter: 2024Q1

REPORT INFORMATION
  Report Type: Spontaneous
  Country: PT (occurrence: PT)
  Receive Date: 20240312
  Receipt Date: 20240312
  Transmission Date: 20240410
  Serious: Yes (Other)
  Sender: FDA-Public Use
  Company Number: PT-SA-2017SA099251

PATIENT
  Age: 5 Year
  Sex: Male

DRUGS (1)
  1. ACETAMINOPHEN [Suspect]
     Active Substance: ACETAMINOPHEN
     Indication: Drug provocation test
     Dosage: DOSE DESCRIPTION : 500 MG,1X
     Route: 048

REACTIONS (3)
  - Drug hypersensitivity [Unknown]
  - Nasal disorder [Unknown]
  - Angioedema [Unknown]
